FAERS Safety Report 9184934 (Version 1)
Quarter: 2013Q1

REPORT INFORMATION
  Report Type: Spontaneous
  Country: US (occurrence: US)
  Receive Date: 20130325
  Receipt Date: 20130325
  Transmission Date: 20140127
  Serious: Yes (Life-Threatening, Hospitalization)
  Sender: FDA-Public Use
  Company Number: US-BRISTOL-MYERS SQUIBB COMPANY-16539751

PATIENT
  Age: 76 Year
  Sex: Male

DRUGS (11)
  1. ERBITUX [Suspect]
     Indication: HEAD AND NECK CANCER
     Dosage: INFUSION
     Route: 042
     Dates: start: 20120313
  2. FAMOTIDINE [Concomitant]
     Indication: PREMEDICATION
     Route: 042
  3. DEXAMETHASONE [Concomitant]
     Indication: PREMEDICATION
     Route: 042
  4. DIPHENHYDRAMINE [Concomitant]
     Indication: PREMEDICATION
     Route: 042
  5. LORAZEPAM [Concomitant]
     Indication: ANXIETY
  6. METFORMIN [Concomitant]
  7. SIMVASTATIN [Concomitant]
  8. FISH OIL [Concomitant]
  9. IRON [Concomitant]
  10. FENTANYL PATCH [Concomitant]
     Indication: PAIN
  11. OXYCODONE [Concomitant]
     Indication: PAIN

REACTIONS (1)
  - Hypersensitivity [Recovered/Resolved]
